FAERS Safety Report 6488058-X (Version None)
Quarter: 2009Q4

REPORT INFORMATION
  Report Type: 
  Country: None (occurrence: None)
  Receive Date: 20091210
  Receipt Date: 20091130
  Transmission Date: 20100525
  Serious: No
  Sender: FDA-Public Use
  Company Number: US-B.I. PHARMACEUTICALS,INC./RIDGEFIELD-2009-BP-13868BP

PATIENT
  Sex: Male

DRUGS (2)
  1. COMBIVENT [Suspect]
     Indication: ASTHMA
     Route: 055
     Dates: start: 20020101
  2. BUDESONIDE [Concomitant]
     Indication: ASTHMA

REACTIONS (3)
  - BACK PAIN [None]
  - DIZZINESS [None]
  - DYSPEPSIA [None]
